FAERS Safety Report 7454448-1 (Version None)
Quarter: 2011Q2

REPORT INFORMATION
  Report Type: 
  Country: None (occurrence: None)
  Receive Date: 20110503
  Receipt Date: 20110425
  Transmission Date: 20111010
  Serious: Yes (Other)
  Sender: FDA-Public Use
  Company Number: JP-ASTELLAS-2011JP002850

PATIENT
  Age: 47 Year
  Sex: Male
  Weight: 91 kg

DRUGS (6)
  1. PROGRAF [Suspect]
     Indication: PROPHYLAXIS AGAINST GRAFT VERSUS HOST DISEASE
     Route: 065
  2. FLUDARABINE [Concomitant]
     Dosage: 125 MG/M2, UNKNOWN/D
     Route: 065
  3. MELPHALAN [Concomitant]
     Dosage: 100 MG/M2, UNKNOWN/D
     Route: 065
  4. METHOTREXATE [Concomitant]
     Indication: PROPHYLAXIS AGAINST GRAFT VERSUS HOST DISEASE
     Dosage: 15 MG/M2, UNKNOWN/D
     Route: 065
  5. METHOTREXATE [Concomitant]
     Dosage: 10 MG/M2, UNKNOWN/D
     Route: 065
  6. METHOTREXATE [Concomitant]
     Dosage: 10 MG/M2, UNKNOWN/D
     Route: 065

REACTIONS (3)
  - CHRONIC GRAFT VERSUS HOST DISEASE [None]
  - DRUG INEFFECTIVE [None]
  - ACUTE GRAFT VERSUS HOST DISEASE IN SKIN [None]
